FAERS Safety Report 14938556 (Version 3)
Quarter: 2019Q1

REPORT INFORMATION
  Report Type: Spontaneous
  Country: US (occurrence: US)
  Receive Date: 20180525
  Receipt Date: 20190109
  Transmission Date: 20190417
  Serious: Yes (Hospitalization, Disabling)
  Sender: FDA-Public Use
  Company Number: US-JNJFOC-20180531630

PATIENT
  Age: 54 Year
  Sex: Male

DRUGS (1)
  1. INVOKANA [Suspect]
     Active Substance: CANAGLIFLOZIN
     Indication: TYPE 2 DIABETES MELLITUS
     Route: 048
     Dates: start: 20161115

REACTIONS (4)
  - Osteomyelitis chronic [Unknown]
  - Gangrene [Unknown]
  - Limb amputation [Unknown]
  - Diabetic foot [Unknown]

NARRATIVE: CASE EVENT DATE: 20170106
